FAERS Safety Report 12421313 (Version 1)
Quarter: 2016Q2

REPORT INFORMATION
  Report Type: Report from Study
  Country: CO (occurrence: CO)
  Receive Date: 20160531
  Receipt Date: 20160531
  Transmission Date: 20160815
  Serious: Yes (Hospitalization)
  Sender: FDA-Public Use
  Company Number: CO-JNJFOC-20160526031

PATIENT
  Age: 64 Year
  Sex: Male
  Weight: 80 kg

DRUGS (2)
  1. RISPERDAL CONSTA [Suspect]
     Active Substance: RISPERIDONE
     Indication: BIPOLAR DISORDER
     Route: 030
     Dates: start: 20150207
  2. LITHIUM CARBONATE. [Concomitant]
     Active Substance: LITHIUM CARBONATE
     Route: 065

REACTIONS (4)
  - Fatigue [Recovering/Resolving]
  - Decreased appetite [Recovering/Resolving]
  - Lung infection [Recovering/Resolving]
  - Cyst removal [Unknown]

NARRATIVE: CASE EVENT DATE: 20160520
